FAERS Safety Report 7241173-5 (Version None)
Quarter: 2011Q1

REPORT INFORMATION
  Report Type: 
  Country: None (occurrence: None)
  Receive Date: 20110124
  Receipt Date: 20110113
  Transmission Date: 20110831
  Serious: Yes (Disabling)
  Sender: FDA-Public Use
  Company Number: JP-ROCHE-729403

PATIENT
  Sex: Female
  Weight: 52 kg

DRUGS (23)
  1. ACTEMRA [Suspect]
     Route: 041
     Dates: start: 20090202, end: 20090202
  2. PREDNISOLONE [Concomitant]
     Route: 048
     Dates: start: 20090810, end: 20091005
  3. ACTEMRA [Suspect]
     Route: 041
     Dates: start: 20090106, end: 20090106
  4. ACTEMRA [Suspect]
     Route: 041
     Dates: start: 20090227, end: 20090227
  5. PROGRAF [Concomitant]
     Dosage: DOSE FORM: PERORAL AGENT
     Route: 048
  6. PREDNISOLONE [Concomitant]
     Dosage: DOSE FORM: PERORAL AGENT
     Route: 048
     Dates: start: 20090323, end: 20090420
  7. ACTEMRA [Suspect]
     Indication: RHEUMATOID ARTHRITIS
     Route: 041
     Dates: start: 20081208, end: 20081208
  8. PREDNISOLONE [Concomitant]
     Dosage: DOSE FORM: PERORAL AGENT
     Route: 048
     Dates: start: 20090202, end: 20090226
  9. ACTEMRA [Suspect]
     Route: 041
     Dates: start: 20090323, end: 20090323
  10. ACTEMRA [Suspect]
     Route: 041
     Dates: start: 20090421, end: 20090421
  11. ACTEMRA [Suspect]
     Route: 041
     Dates: start: 20090101
  12. FOLIAMIN [Concomitant]
     Dosage: DOSE FORM: PERORAL AGENT
     Route: 048
  13. KETOPROFEN [Concomitant]
     Dosage: DOSE FORM: TAPE; DRUG NAME: MOHRUS TAPE(KETOPROFEN
     Route: 062
  14. PREDNISOLONE [Concomitant]
     Dosage: DOSE FORM: PERORAL AGENT
     Route: 048
     Dates: start: 20090421, end: 20090515
  15. METHOTREXATE [Concomitant]
     Dosage: DOSE FORM: PERORAL AGENT
     Route: 048
  16. ISCOTIN [Concomitant]
     Dosage: DOSE FORM: PERORAL AGENT
     Route: 048
     Dates: start: 20081203, end: 20090712
  17. PREDNISOLONE [Concomitant]
     Route: 048
     Dates: start: 20090616, end: 20090809
  18. MUCOSTA [Concomitant]
     Dosage: DOSE FORM: PERORAL AGENT
     Route: 048
  19. ACTEMRA [Suspect]
     Route: 041
     Dates: start: 20090520, end: 20090520
  20. PREDNISOLONE [Concomitant]
     Dosage: DOSE FORM: PERORAL AGENT
     Route: 048
     Dates: end: 20090201
  21. PREDNISOLONE [Concomitant]
     Dosage: DOSE FORM: PERORAL AGENT
     Route: 048
     Dates: start: 20090227, end: 20090322
  22. LOXONIN [Concomitant]
     Dosage: DOSE FORM: PERORAL AGENT
     Route: 048
  23. PREDNISOLONE [Concomitant]
     Route: 048
     Dates: start: 20090516, end: 20090615

REACTIONS (1)
  - SUBARACHNOID HAEMORRHAGE [None]
